FAERS Safety Report 8713626 (Version 2)
Quarter: 2012Q4

REPORT INFORMATION
  Report Type: 
  Country: US (occurrence: US)
  Receive Date: 20120808
  Receipt Date: 20121120
  Transmission Date: 20130627
  Serious: Yes (Hospitalization)
  Sender: FDA-Public Use
  Company Number: US-ELI_LILLY_AND_COMPANY-US201208001033

PATIENT
  Age: 52 Year
  Sex: Female
  Weight: 99 kg

DRUGS (7)
  1. EFFIENT [Suspect]
     Indication: STENT PLACEMENT
     Dosage: 10 mg, qd
     Route: 048
     Dates: end: 20120801
  2. METOPROLOL [Concomitant]
  3. AMLODIPINE [Concomitant]
     Dosage: 5 mg, qd
  4. ASPIRIN [Concomitant]
     Dosage: 81 mg, qd
     Route: 065
  5. LIPITOR [Concomitant]
     Dosage: 10 mg, qd
  6. LISINOPRIL [Concomitant]
     Dosage: 20 mg, qd
  7. LOPRESSOR [Concomitant]
     Dosage: 25 mg, qd

REACTIONS (1)
  - Coronary artery restenosis [Recovered/Resolved]
